FAERS Safety Report 10450988 (Version 1)
Quarter: 2014Q3

REPORT INFORMATION
  Report Type: Spontaneous
  Country: US (occurrence: US)
  Receive Date: 20140912
  Receipt Date: 20140912
  Transmission Date: 20150326
  Serious: Yes (Other)
  Sender: FDA-Public Use
  Company Number: US-TEVA-507613USA

PATIENT
  Sex: Female

DRUGS (1)
  1. COPAXONE [Suspect]
     Active Substance: GLATIRAMER ACETATE
     Indication: MULTIPLE SCLEROSIS
     Dates: start: 20140810

REACTIONS (10)
  - Musculoskeletal stiffness [Not Recovered/Not Resolved]
  - Cervical vertebral fracture [Unknown]
  - Arthritis [Not Recovered/Not Resolved]
  - Dermatitis contact [Not Recovered/Not Resolved]
  - Myocardial infarction [Unknown]
  - Spinal fracture [Unknown]
  - Pain in extremity [Recovering/Resolving]
  - Fibromyalgia [Not Recovered/Not Resolved]
  - Intervertebral disc disorder [Unknown]
  - Anhedonia [Not Recovered/Not Resolved]
